FAERS Safety Report 9555767 (Version 1)
Quarter: 2013Q3

REPORT INFORMATION
  Report Type: Spontaneous
  Country: US (occurrence: None)
  Receive Date: 20130726
  Receipt Date: 20130726
  Transmission Date: 20140515
  Serious: Yes (Hospitalization)
  Sender: FDA-Public Use
  Company Number: UTC-023940

PATIENT
  Age: 51 Year
  Sex: Female
  Weight: 120.4 kg

DRUGS (5)
  1. REMODULIN [Suspect]
     Indication: PULMONARY ARTERIAL HYPERTENSION
     Dosage: 44.28 UG/KG )0.03075 UG/KG, 1 IN 1 MIN), INTRAVENOUS DRIP
     Route: 041
     Dates: start: 20120218
  2. REVATIO (SILDENAFIL CITRATE) (UNKNOWN) (SILDENAFIL) [Concomitant]
  3. COUMADIN (WARFARIN SODIUM) [Concomitant]
  4. DIGOXIN [Concomitant]
  5. TIKOSYN (DOFETILIDE) [Concomitant]

REACTIONS (3)
  - Diarrhoea [None]
  - Headache [None]
  - Injection site cellulitis [None]
